FAERS Safety Report 26082782 (Version 1)
Quarter: 2025Q4

REPORT INFORMATION
  Report Type: Spontaneous
  Country: CA (occurrence: CA)
  Receive Date: 20251124
  Receipt Date: 20251124
  Transmission Date: 20260118
  Serious: Yes (Other)
  Sender: TEVA
  Company Number: CA-TEVA-VS-3395614

PATIENT
  Age: 67 Year
  Sex: Male

DRUGS (3)
  1. CYCLOSPORINE [Suspect]
     Active Substance: CYCLOSPORINE
     Indication: Prophylaxis against transplant rejection
     Dosage: DOSE FORM: NOT SPECIFIED
     Route: 065
  2. PREDNISONE [Suspect]
     Active Substance: PREDNISONE
     Indication: Prophylaxis against transplant rejection
     Dosage: DOSE FORM: NOT SPECIFIED
     Route: 065
  3. MYCOPHENOLATE MOFETIL [Suspect]
     Active Substance: MYCOPHENOLATE MOFETIL
     Indication: Prophylaxis against transplant rejection
     Route: 065

REACTIONS (9)
  - Disseminated blastomycosis [Unknown]
  - Blastomycosis [Unknown]
  - Osteomyelitis [Unknown]
  - Pulmonary blastomycosis [Unknown]
  - Infection [Unknown]
  - Epididymitis [Unknown]
  - Bone disorder [Unknown]
  - Orchitis [Unknown]
  - Arthritis bacterial [Unknown]
